FAERS Safety Report 7391296-5 (Version None)
Quarter: 2011Q2

REPORT INFORMATION
  Report Type: 
  Country: None (occurrence: None)
  Receive Date: 20110404
  Receipt Date: 20100621
  Transmission Date: 20111010
  Serious: No
  Sender: FDA-Public Use
  Company Number: US-PFIZER INC-2010077959

PATIENT

DRUGS (1)
  1. ZOLOFT [Suspect]

REACTIONS (1)
  - BRUXISM [None]
